FAERS Safety Report 4810248-X (Version None)
Quarter: 2005Q4

REPORT INFORMATION
  Report Type: 
  Country: None (occurrence: None)
  Receive Date: 20051026
  Receipt Date: 20051013
  Transmission Date: 20060501
  Serious: Yes (Life-Threatening)
  Sender: FDA-Public Use
  Company Number: FR-GLAXOSMITHKLINE-B0397640A

PATIENT
  Age: 38 Year
  Sex: Male
  Weight: 65 kg

DRUGS (4)
  1. RETROVIR [Suspect]
     Indication: HIV INFECTION
     Dosage: 2UNIT PER DAY
     Route: 048
     Dates: start: 20050329
  2. EPIVIR [Suspect]
     Indication: HIV INFECTION
     Route: 048
     Dates: start: 20030101, end: 20050301
  3. SUSTIVA [Suspect]
     Indication: HIV INFECTION
     Dosage: 600MG PER DAY
     Route: 048
     Dates: start: 20050329
  4. VIDEX [Suspect]
     Indication: HIV INFECTION
     Dosage: 4UNIT PER DAY
     Route: 048
     Dates: start: 20030101

REACTIONS (4)
  - ANXIETY [None]
  - DEPRESSION [None]
  - HYPERTRIGLYCERIDAEMIA [None]
  - SUICIDAL IDEATION [None]
